FAERS Safety Report 12556565 (Version 1)
Quarter: 2016Q3

REPORT INFORMATION
  Report Type: Spontaneous
  Country: US (occurrence: US)
  Receive Date: 20160714
  Receipt Date: 20160714
  Transmission Date: 20161109
  Serious: No
  Sender: FDA-Public Use
  Company Number: US-HORIZON-PEN-0316-2016

PATIENT
  Age: 67 Year
  Sex: Female

DRUGS (15)
  1. ESTRADIOL. [Concomitant]
     Active Substance: ESTRADIOL
     Dosage: 1 MG ONCE DAILY
     Route: 048
  2. PRAVASTATIN. [Concomitant]
     Active Substance: PRAVASTATIN
     Dosage: 20 MG ONCE DAILY
     Route: 048
  3. COENZYME Q10 [Concomitant]
     Active Substance: UBIDECARENONE
     Dosage: 200 MG DAILY
     Route: 048
  4. METOPROLOL SUCCINATE. [Concomitant]
     Active Substance: METOPROLOL SUCCINATE
     Dosage: 50 MG ONCE DAILY
     Route: 048
  5. MUPIROCIN 2% [Concomitant]
     Active Substance: MUPIROCIN
     Route: 061
  6. NEURONTIN [Suspect]
     Active Substance: GABAPENTIN
     Indication: PRODUCT USED FOR UNKNOWN INDICATION
     Dosage: 100 MG TID
     Route: 048
     Dates: start: 20160219
  7. B COMPLEX EXTENDED RELEASE [Concomitant]
     Dosage: 1 DF ONCE DAILY
     Route: 048
  8. DHEA [Concomitant]
     Active Substance: PRASTERONE
     Dosage: 50 MG DAILY
     Route: 048
  9. OXYCODONE [Concomitant]
     Active Substance: OXYCODONE
     Dosage: 10 MG EVERY 8 HOURS
     Route: 048
     Dates: start: 20160531
  10. PENNSAID [Suspect]
     Active Substance: DICLOFENAC SODIUM
     Indication: PRODUCT USED FOR UNKNOWN INDICATION
     Dosage: 2 DF (40 MG) BID
     Route: 061
     Dates: start: 20160401
  11. FLECTOR [Suspect]
     Active Substance: DICLOFENAC EPOLAMINE
     Indication: PAIN
     Dosage: ONCE DAILY
     Route: 062
     Dates: start: 20160407
  12. ASPIRIN. [Concomitant]
     Active Substance: ASPIRIN
     Dosage: 325 MG ONCE DAILY
     Route: 048
  13. OMEGA-3 ACIDS [Concomitant]
     Active Substance: OMEGA-3 FATTY ACIDS
     Dosage: 1000 MG ONCE DAILY
     Route: 048
  14. PLAVIX [Concomitant]
     Active Substance: CLOPIDOGREL BISULFATE
     Dosage: 75 MG ONCE DAILY
     Route: 048
  15. LISINOPRIL. [Concomitant]
     Active Substance: LISINOPRIL
     Dosage: 5 MG ONCE DAILY
     Route: 048

REACTIONS (1)
  - Drug hypersensitivity [Unknown]
